FAERS Safety Report 10642373 (Version 1)
Quarter: 2014Q4

REPORT INFORMATION
  Report Type: Spontaneous
  Country: US (occurrence: US)
  Receive Date: 20141210
  Receipt Date: 20141210
  Transmission Date: 20150529
  Serious: No
  Sender: FDA-Public Use
  Company Number: US-BIOGENIDEC-2014BI129689

PATIENT
  Age: 51 Year
  Sex: Female

DRUGS (1)
  1. TECFIDERA [Suspect]
     Active Substance: DIMETHYL FUMARATE
     Indication: MULTIPLE SCLEROSIS
     Route: 048
     Dates: start: 20141128

REACTIONS (3)
  - Headache [Recovered/Resolved]
  - Hypoaesthesia [Recovered/Resolved]
  - Peripheral coldness [Not Recovered/Not Resolved]

NARRATIVE: CASE EVENT DATE: 20141128
